FAERS Safety Report 4489133-1 (Version None)
Quarter: 2004Q4

REPORT INFORMATION
  Report Type: 
  Country: None (occurrence: None)
  Receive Date: 20041029
  Receipt Date: 20041019
  Transmission Date: 20050328
  Serious: Yes (Hospitalization, Disabling)
  Sender: FDA-Public Use
  Company Number: US-MERCK-0410USA02931

PATIENT
  Age: 71 Year
  Sex: Female

DRUGS (14)
  1. VIOXX [Suspect]
     Indication: ARTHRITIS
     Route: 048
     Dates: end: 20040401
  2. TOPROL-XL [Concomitant]
     Route: 065
  3. ASPIRIN [Concomitant]
     Route: 065
  4. PRAVACHOL [Concomitant]
     Route: 065
  5. PROTONIX [Concomitant]
     Route: 065
  6. TRAZODONE HYDROCHLORIDE [Concomitant]
     Route: 065
  7. LIPITOR [Concomitant]
     Route: 065
  8. EVISTA [Concomitant]
     Route: 065
  9. SKELAXIN [Concomitant]
     Route: 065
  10. TORSEMIDE [Concomitant]
     Route: 065
  11. CARBATROL [Concomitant]
     Route: 065
  12. DICYCLOMINE HYDROCHLORIDE [Concomitant]
     Route: 065
  13. ISOSORBIDE [Concomitant]
     Route: 065
  14. [THERAPY UNSPECIFIED] [Concomitant]
     Route: 065

REACTIONS (1)
  - MYOCARDIAL INFARCTION [None]
